FAERS Safety Report 24979949 (Version 2)
Quarter: 2025Q3

REPORT INFORMATION
  Report Type: Spontaneous
  Country: US (occurrence: US)
  Receive Date: 20250218
  Receipt Date: 20250810
  Transmission Date: 20251020
  Serious: Yes (Other)
  Sender: ALEXION PHARMACEUTICALS
  Company Number: US-AstraZeneca-CH-00808351A

PATIENT
  Age: 54 Year
  Sex: Male
  Weight: 113.38 kg

DRUGS (1)
  1. DURVALUMAB [Suspect]
     Active Substance: DURVALUMAB
     Indication: Cholangiocarcinoma
     Dates: start: 20230920, end: 20250205

REACTIONS (1)
  - Salivary gland disorder [Recovered/Resolved]

NARRATIVE: CASE EVENT DATE: 20240401
